FAERS Safety Report 18559357 (Version 1)
Quarter: 2020Q4

REPORT INFORMATION
  Report Type: Spontaneous
  Country: US (occurrence: US)
  Receive Date: 20201130
  Receipt Date: 20201130
  Transmission Date: 20210114
  Serious: Yes (Other)
  Sender: FDA-Public Use
  Company Number: US-JNJFOC-20201137493

PATIENT
  Age: 58 Year
  Sex: Female

DRUGS (5)
  1. TOPIRAMATE. [Suspect]
     Active Substance: TOPIRAMATE
     Indication: MIGRAINE
     Route: 048
  2. TOPIRAMATE. [Suspect]
     Active Substance: TOPIRAMATE
     Route: 048
  3. IMBRUVICA [Suspect]
     Active Substance: IBRUTINIB
     Indication: CHRONIC LYMPHOCYTIC LEUKAEMIA
     Dosage: QD
     Route: 048
     Dates: start: 20180406
  4. IMBRUVICA [Suspect]
     Active Substance: IBRUTINIB
     Dosage: QD
     Route: 048
     Dates: start: 201804
  5. IMBRUVICA [Suspect]
     Active Substance: IBRUTINIB
     Dosage: QD
     Route: 048
     Dates: start: 20190210

REACTIONS (14)
  - Systemic lupus erythematosus [Unknown]
  - Somnolence [Unknown]
  - Dry eye [Unknown]
  - Breast mass [Unknown]
  - Breast pain [Unknown]
  - Bronchitis [Unknown]
  - Emotional disorder [Unknown]
  - Muscle spasms [Unknown]
  - Arthralgia [Unknown]
  - Bradycardia [Unknown]
  - Disturbance in attention [Unknown]
  - Rash papular [Unknown]
  - Dizziness [Unknown]
  - Aphasia [Unknown]

NARRATIVE: CASE EVENT DATE: 201708
